FAERS Safety Report 6095190-1 (Version None)
Quarter: 2009Q1

REPORT INFORMATION
  Report Type: 
  Country: None (occurrence: None)
  Receive Date: 20090227
  Receipt Date: 20080211
  Transmission Date: 20090719
  Serious: No
  Sender: FDA-Public Use
  Company Number: A0708677A

PATIENT
  Age: 66 Year
  Sex: Male

DRUGS (13)
  1. LAMICTAL [Suspect]
     Indication: BIPOLAR DISORDER
     Dosage: 25MG PER DAY
     Route: 048
     Dates: start: 20070301, end: 20080101
  2. ALLOPURINOL [Concomitant]
  3. AMBIEN [Concomitant]
  4. ANDROGEL [Concomitant]
  5. ATIVAN [Concomitant]
  6. CYMBALTA [Concomitant]
  7. DYNACIRC [Concomitant]
  8. FUROSEMIDE [Concomitant]
  9. LOPID [Concomitant]
  10. OXYBUTYNIN CHLORIDE [Concomitant]
  11. SOMA [Concomitant]
  12. TOPROL-XL [Concomitant]
  13. MORPHINE [Concomitant]

REACTIONS (1)
  - RASH [None]
